FAERS Safety Report 7990198 (Version 3)
Quarter: 2017Q2

REPORT INFORMATION
  Report Type: Spontaneous
  Country: GB (occurrence: GB)
  Receive Date: 20110614
  Receipt Date: 20170628
  Transmission Date: 20170830
  Serious: Yes (Death, Life-Threatening, Other)
  Sender: FDA-Public Use
  Company Number: GB-PFIZER INC-2011128258

PATIENT
  Age: 29 Year
  Sex: Female

DRUGS (3)
  1. MIFEGYNE [Suspect]
     Active Substance: MIFEPRISTONE
     Indication: ABORTION INDUCED
     Dosage: 200 MG, TOTAL DOSE
     Route: 065
     Dates: start: 20080417, end: 20080417
  2. CODEINE [Concomitant]
     Active Substance: CODEINE
     Indication: ANALGESIC THERAPY
     Dosage: UNK
  3. MISOPROSTOL. [Suspect]
     Active Substance: MISOPROSTOL
     Indication: ABORTION INDUCED
     Dosage: 800 UG, TOTAL DOSE
     Route: 067
     Dates: start: 20080418, end: 20080418

REACTIONS (5)
  - Incorrect dose administered [Fatal]
  - Incorrect route of drug administration [Fatal]
  - Asthma [Fatal]
  - Cardiac arrest [Fatal]
  - Inappropriate schedule of drug administration [Fatal]

NARRATIVE: CASE EVENT DATE: 200804
